FAERS Safety Report 25860230 (Version 1)
Quarter: 2025Q3

REPORT INFORMATION
  Report Type: Spontaneous
  Country: CN (occurrence: CN)
  Receive Date: 20250929
  Receipt Date: 20250929
  Transmission Date: 20251020
  Serious: Yes (Life-Threatening)
  Sender: ROCHE
  Company Number: CN-BoehringerIngelheim-2025-BI-097113

PATIENT
  Age: 80 Year
  Sex: Female
  Weight: 55.8 kg

DRUGS (2)
  1. ALTEPLASE [Suspect]
     Active Substance: ALTEPLASE
     Indication: Cerebral infarction
     Route: 042
     Dates: start: 20250822, end: 20250822
  2. ALTEPLASE [Suspect]
     Active Substance: ALTEPLASE
     Route: 042
     Dates: start: 20250822, end: 20250822

REACTIONS (2)
  - Cardiac failure acute [Recovering/Resolving]
  - Blood pressure systolic increased [Recovering/Resolving]

NARRATIVE: CASE EVENT DATE: 20250822
